FAERS Safety Report 10530464 (Version 1)
Quarter: 2014Q4

REPORT INFORMATION
  Report Type: Spontaneous
  Country: CA (occurrence: CA)
  Receive Date: 20141021
  Receipt Date: 20141021
  Transmission Date: 20150528
  Serious: Yes (Other)
  Sender: FDA-Public Use
  Company Number: CHPA2014CA013950

PATIENT
  Age: 57 Year
  Sex: Male

DRUGS (3)
  1. HYDROCORTISONE. [Suspect]
     Active Substance: HYDROCORTISONE
     Indication: BODY TINEA
     Dosage: UNK,UNK
     Route: 061
  2. HYDROCORTISONE. [Suspect]
     Active Substance: HYDROCORTISONE
     Indication: OFF LABEL USE
  3. CALCIPOTRIOL [Concomitant]
     Active Substance: CALCIPOTRIENE
     Dosage: UNK,UNK

REACTIONS (14)
  - Ascites [Unknown]
  - Anaemia macrocytic [Unknown]
  - Skin exfoliation [Unknown]
  - Rash [Recovered/Resolved]
  - Skin oedema [Unknown]
  - Abdominal distension [Unknown]
  - Scab [Unknown]
  - Epidermal necrosis [Unknown]
  - Tinea infection [Unknown]
  - Hepatic cirrhosis [Unknown]
  - Mouth ulceration [Unknown]
  - Parakeratosis [Unknown]
  - Dermatitis [Unknown]
  - Telangiectasia [Unknown]
